FAERS Safety Report 9149344 (Version 1)
Quarter: 2013Q1

REPORT INFORMATION
  Report Type: Report from Study
  Country: CO (occurrence: CO)
  Receive Date: 20130308
  Receipt Date: 20130308
  Transmission Date: 20140127
  Serious: Yes (Life-Threatening, Hospitalization)
  Sender: FDA-Public Use
  Company Number: CO-SANOFI-AVENTIS-2013SA022774

PATIENT
  Age: 66 Year
  Sex: Male

DRUGS (7)
  1. INSULIN GLARGINE [Suspect]
     Indication: DIABETES MELLITUS
     Route: 058
     Dates: start: 2011
  2. SPIRONOLACTONE [Concomitant]
     Indication: CORONARY ARTERY DISEASE
     Route: 048
  3. FUROSEMIDE [Concomitant]
     Indication: CORONARY ARTERY DISEASE
     Route: 048
  4. CARVEDILOL [Concomitant]
     Indication: CORONARY ARTERY DISEASE
     Route: 048
  5. METFORMIN [Concomitant]
     Indication: DIABETES MELLITUS
     Route: 048
  6. LOVASTATIN [Concomitant]
     Indication: DYSLIPIDAEMIA
     Route: 048
  7. ACETYLSALICYLIC ACID [Concomitant]
     Indication: CORONARY ARTERY DISEASE
     Route: 048

REACTIONS (1)
  - Ischaemic cardiomyopathy [Recovering/Resolving]
